FAERS Safety Report 5554942-4 (Version None)
Quarter: 2007Q4

REPORT INFORMATION
  Report Type: 
  Country: None (occurrence: None)
  Receive Date: 20071213
  Receipt Date: 20071204
  Transmission Date: 20080405
  Serious: Yes (Hospitalization)
  Sender: FDA-Public Use
  Company Number: GB-ASTRAZENECA-2007AC02396

PATIENT
  Age: 52 Year
  Sex: Male

DRUGS (4)
  1. ATENOLOL [Suspect]
  2. AMLODIPINE [Suspect]
  3. LOSARTAN POTASSIUM [Suspect]
  4. ZOPICLONE [Suspect]

REACTIONS (4)
  - ATRIOVENTRICULAR BLOCK FIRST DEGREE [None]
  - BRADYCARDIA [None]
  - HYPOTENSION [None]
  - MULTIPLE DRUG OVERDOSE [None]
